FAERS Safety Report 17288713 (Version 6)
Quarter: 2020Q3

REPORT INFORMATION
  Report Type: Report from Study
  Country: None (occurrence: US)
  Receive Date: 20200120
  Receipt Date: 20200710
  Transmission Date: 20201102
  Serious: Yes (Hospitalization)
  Sender: FDA-Public Use
  Company Number: US-INSMED, INC.-US-INS-19-03314

PATIENT
  Age: 74 Year
  Sex: Female
  Weight: 49.9 kg

DRUGS (3)
  1. ARIKAYCE [Suspect]
     Active Substance: AMIKACIN
     Indication: MYCOBACTERIAL INFECTION
     Route: 055
     Dates: start: 201909, end: 202005
  2. ARIKAYCE [Suspect]
     Active Substance: AMIKACIN
     Route: 055
     Dates: start: 2020, end: 2020
  3. LAMIRA NEBULIZER SYSTEM [Suspect]
     Active Substance: DEVICE

REACTIONS (13)
  - Productive cough [Not Recovered/Not Resolved]
  - Fatigue [Unknown]
  - Haemoptysis [Not Recovered/Not Resolved]
  - Myocardial infarction [Not Recovered/Not Resolved]
  - Heart rate increased [Unknown]
  - Throat irritation [Unknown]
  - Vomiting [Unknown]
  - Product dose omission issue [Unknown]
  - Retching [Unknown]
  - Cough [Unknown]
  - Pneumonectomy [Recovering/Resolving]
  - Pharyngeal mass [Unknown]
  - Tachycardia [Recovered/Resolved]

NARRATIVE: CASE EVENT DATE: 20191002
